FAERS Safety Report 9816539 (Version 1)
Quarter: 2014Q1

REPORT INFORMATION
  Report Type: Spontaneous
  Country: FR (occurrence: FR)
  Receive Date: 20140114
  Receipt Date: 20140114
  Transmission Date: 20141002
  Serious: Yes (Hospitalization)
  Sender: FDA-Public Use
  Company Number: FR-B.I. PHARMACEUTICALS,INC./RIDGEFIELD-2014-BI-01519FF

PATIENT
  Age: 62 Year
  Sex: Male

DRUGS (6)
  1. PRADAXA [Suspect]
     Indication: THROMBOSIS PROPHYLAXIS
     Dosage: 110 MG
     Route: 048
     Dates: start: 20130309, end: 20130418
  2. CORDARONE [Suspect]
     Dosage: 5.7143 MG
     Route: 048
  3. TARCEVA 150 MG [Concomitant]
     Dosage: 150 MG
     Route: 048
  4. PAROXETINE BASE 20 [Concomitant]
     Route: 048
  5. ATARAX 25 MG [Concomitant]
     Dosage: 25 MG
     Route: 048
  6. LEVOTHYROX 175 MCG [Concomitant]
     Dosage: 175 MG
     Route: 048

REACTIONS (2)
  - Phlebitis [Recovered/Resolved]
  - Drug ineffective [Recovered/Resolved]
